FAERS Safety Report 4562979-7 (Version None)
Quarter: 2005Q1

REPORT INFORMATION
  Report Type: 
  Country: None (occurrence: None)
  Receive Date: 20050121
  Receipt Date: 20050107
  Transmission Date: 20050727
  Serious: Yes (Hospitalization)
  Sender: FDA-Public Use
  Company Number: 2005009171

PATIENT
  Age: 74 Year
  Sex: Male

DRUGS (2)
  1. TOLTERODINE (TOLTERODINE) [Suspect]
     Indication: POLLAKIURIA
     Dosage: (4 MG), ORAL
     Route: 048
     Dates: start: 20041105, end: 20041217
  2. NAPROXEN [Concomitant]

REACTIONS (3)
  - COMMUNICATION DISORDER [None]
  - CONFUSIONAL STATE [None]
  - NERVOUS SYSTEM DISORDER [None]
